FAERS Safety Report 7810257-2 (Version None)
Quarter: 2011Q4

REPORT INFORMATION
  Report Type: 
  Country: None (occurrence: None)
  Receive Date: 20111012
  Receipt Date: 20111004
  Transmission Date: 20120403
  Serious: Yes (Hospitalization, Other)
  Sender: FDA-Public Use
  Company Number: US-ABBOTT-11P-163-0862615-00

PATIENT
  Sex: Male
  Weight: 72.64 kg

DRUGS (4)
  1. HUMIRA [Suspect]
     Indication: CROHN'S DISEASE
     Dosage: ON HOLD DUE TO SURGERY
     Route: 058
     Dates: end: 20110924
  2. PREDNISONE TAB [Concomitant]
     Indication: INFLAMMATION
     Dosage: ON AND OFF
     Route: 058
  3. IMURAN [Concomitant]
     Indication: CROHN'S DISEASE
     Dates: end: 20110930
  4. PROTONIX [Concomitant]
     Indication: GASTRIC DISORDER

REACTIONS (4)
  - INTESTINAL STENOSIS [None]
  - INFLAMMATION [None]
  - ABDOMINAL PAIN [None]
  - CROHN'S DISEASE [None]
